FAERS Safety Report 17772410 (Version 7)
Quarter: 2021Q2

REPORT INFORMATION
  Report Type: Report from Study
  Country: CH (occurrence: CH)
  Receive Date: 20200512
  Receipt Date: 20210525
  Transmission Date: 20210716
  Serious: Yes (Other)
  Sender: FDA-Public Use
  Company Number: CH-INCYTE CORPORATION-2018IN009041

PATIENT

DRUGS (15)
  1. JAKAVI [Suspect]
     Active Substance: RUXOLITINIB
     Dosage: 15 MG, UNK
     Route: 065
     Dates: start: 20180127, end: 20180331
  2. JAKAVI [Suspect]
     Active Substance: RUXOLITINIB
     Dosage: 10 UKN (UNITS UNSPECIFIED)
     Route: 065
     Dates: start: 20190912, end: 20191031
  3. JAKAVI [Suspect]
     Active Substance: RUXOLITINIB
     Dosage: 20 UKN (UNITS: UNSPECIFIED)
     Route: 065
     Dates: start: 20200225
  4. PERINDOPRIL [Concomitant]
     Active Substance: PERINDOPRIL
     Indication: MYOCARDIAL INFARCTION
     Dosage: 4 UNK
     Route: 065
  5. ASPIRIN. [Concomitant]
     Active Substance: ASPIRIN
     Indication: MYOCARDIAL INFARCTION
     Route: 065
  6. JAKAVI [Suspect]
     Active Substance: RUXOLITINIB
     Indication: POLYCYTHAEMIA VERA
     Dosage: 30 MG, UNK
     Route: 065
     Dates: start: 20171013, end: 20171209
  7. JAKAVI [Suspect]
     Active Substance: RUXOLITINIB
     Dosage: 15 MG, UNK
     Route: 065
     Dates: start: 20180413, end: 20180507
  8. JAKAVI [Suspect]
     Active Substance: RUXOLITINIB
     Dosage: 7.5 UKN (UNITS: UNKNOWN)
     Route: 065
     Dates: start: 20190228, end: 20190626
  9. JAKAVI [Suspect]
     Active Substance: RUXOLITINIB
     Dosage: 5 UNK (UNITS: UNSPECIFIED)
     Route: 065
     Dates: start: 20190725, end: 20190911
  10. EUTHYROX [Concomitant]
     Active Substance: LEVOTHYROXINE SODIUM
     Indication: HYPOTHYROIDISM
     Dosage: 75 UKN
     Route: 065
     Dates: end: 20180329
  11. JAKAVI [Suspect]
     Active Substance: RUXOLITINIB
     Dosage: 15 MG, UNK
     Route: 065
     Dates: start: 20171210, end: 20180114
  12. EUTHYROX [Concomitant]
     Active Substance: LEVOTHYROXINE SODIUM
     Dosage: 50 UKN
     Route: 065
     Dates: start: 20180330
  13. ATORVASTATIN [Concomitant]
     Active Substance: ATORVASTATIN
     Indication: MYOCARDIAL INFARCTION
     Dosage: 40 UKN (UNITS: UNSPECIFIED)
     Route: 065
  14. JAKAVI [Suspect]
     Active Substance: RUXOLITINIB
     Dosage: 15 MG, UNK
     Route: 065
     Dates: start: 20180528, end: 20190120
  15. LITALIR [Concomitant]
     Active Substance: HYDROXYUREA
     Indication: POLYCYTHAEMIA VERA
     Dosage: 500 UKN
     Route: 065
     Dates: start: 20170508, end: 20171010

REACTIONS (15)
  - Leukocytosis [Recovered/Resolved]
  - Leukocytosis [Not Recovered/Not Resolved]
  - Anaemia [Recovered/Resolved]
  - Anaemia [Recovered/Resolved]
  - Chronic obstructive pulmonary disease [Recovered/Resolved]
  - Respiratory failure [Recovered/Resolved]
  - Leukocytosis [Recovered/Resolved]
  - Thrombocytopenia [Recovered/Resolved]
  - Thrombocytopenia [Not Recovered/Not Resolved]
  - Respiratory failure [Recovered/Resolved]
  - Chronic obstructive pulmonary disease [Recovered/Resolved]
  - Clostridium difficile colitis [Recovered/Resolved]
  - Cardiac failure [Recovered/Resolved]
  - Anaemia [Recovered/Resolved]
  - Respiratory failure [Recovered/Resolved]

NARRATIVE: CASE EVENT DATE: 20171209
